FAERS Safety Report 7971304-0 (Version None)
Quarter: 2011Q4

REPORT INFORMATION
  Report Type: 
  Country: None (occurrence: None)
  Receive Date: 20111212
  Receipt Date: 20111207
  Transmission Date: 20120403
  Serious: Yes (Death)
  Sender: FDA-Public Use
  Company Number: US-ASTRAZENECA-2011SE74317

PATIENT
  Age: 77 Year
  Sex: Male

DRUGS (1)
  1. NEXIUM [Suspect]
     Indication: BIPOLAR DISORDER
     Route: 048

REACTIONS (1)
  - MYOCARDIAL INFARCTION [None]
